FAERS Safety Report 9459230 (Version 2)
Quarter: 2013Q3

REPORT INFORMATION
  Report Type: Spontaneous
  Country: FR (occurrence: FR)
  Receive Date: 20130814
  Receipt Date: 20130827
  Transmission Date: 20140515
  Serious: Yes (Hospitalization)
  Sender: FDA-Public Use
  Company Number: FR-B.I. PHARMACEUTICALS,INC./RIDGEFIELD-2013-BI-24539YA

PATIENT
  Age: 72 Year
  Sex: Male

DRUGS (8)
  1. TAMSULOSINA [Suspect]
     Indication: BENIGN PROSTATIC HYPERPLASIA
     Dosage: 0.4 MG
     Route: 048
     Dates: start: 201301, end: 20130513
  2. BUMETANIDE [Suspect]
     Indication: CARDIOMYOPATHY
     Dosage: 5 MG
     Route: 048
     Dates: end: 20130514
  3. HYTACAND [Suspect]
     Indication: CARDIOMYOPATHY
     Dosage: 1 ANZ
     Route: 048
     Dates: end: 20130514
  4. TEMERIT [Suspect]
     Indication: CARDIOMYOPATHY
     Dosage: 5 MG
     Route: 048
     Dates: end: 20130513
  5. CORDARONE [Suspect]
     Indication: ATRIAL FIBRILLATION
     Dosage: 200 MG
     Route: 048
  6. LEVOTHYROX [Concomitant]
     Indication: HYPOTHYROIDISM
     Dosage: 75 MCG
  7. PREVISCAN [Concomitant]
     Indication: ATRIAL FIBRILLATION
     Dosage: 1/2 TABLETS EVERY OTHER DAY, 3/4 TABLETS EVERY OTHER DAY
  8. MOPROL [Concomitant]
     Indication: PRODUCT USED FOR UNKNOWN INDICATION
     Dosage: 10 NR

REACTIONS (5)
  - Bradycardia [Recovered/Resolved]
  - Monoparesis [Recovered/Resolved]
  - Dysaesthesia [Recovered/Resolved]
  - Syncope [Recovered/Resolved]
  - Drug interaction [Unknown]
